FAERS Safety Report 9742886 (Version 1)
Quarter: 2013Q4

REPORT INFORMATION
  Report Type: Spontaneous
  Country: BE (occurrence: BE)
  Receive Date: 20131210
  Receipt Date: 20131210
  Transmission Date: 20140711
  Serious: Yes (Hospitalization)
  Sender: FDA-Public Use
  Company Number: BE-B.I. PHARMACEUTICALS,INC./RIDGEFIELD-2013-BI-40360BL

PATIENT
  Age: 87 Year
  Sex: Female

DRUGS (6)
  1. PRADAXA [Suspect]
     Indication: ATRIAL FIBRILLATION
     Dosage: 220 MG
     Route: 048
     Dates: start: 201212, end: 201310
  2. ASAFLOW [Concomitant]
     Dosage: 80 MG
     Route: 048
  3. CORDARONE [Concomitant]
     Dosage: 200 MG
     Route: 048
  4. CORUNO [Concomitant]
     Indication: ANXIETY
     Route: 048
  5. BISOPROLOL [Concomitant]
     Indication: ANXIETY
     Dosage: 2.5 MG
     Route: 048
  6. TRITACE [Concomitant]
     Indication: HYPERTENSION
     Dosage: 5 MG
     Route: 048

REACTIONS (1)
  - Iron deficiency anaemia [Not Recovered/Not Resolved]
